FAERS Safety Report 5236957-9 (Version None)
Quarter: 2007Q1

REPORT INFORMATION
  Report Type: 
  Country: None (occurrence: None)
  Receive Date: 20070209
  Receipt Date: 20070126
  Transmission Date: 20070707
  Serious: Yes (Death, Life-Threatening, Hospitalization, Other)
  Sender: FDA-Public Use
  Company Number: POMP-10933

PATIENT
  Age: 19 Month
  Sex: Female
  Weight: 11.8 kg

DRUGS (8)
  1. MYOZYME [Suspect]
     Indication: GLYCOGEN STORAGE DISEASE TYPE II
     Dosage: 250 MG Q2WKS IV
     Route: 042
     Dates: start: 20061007
  2. MYOZYME [Suspect]
  3. MYOZYME [Suspect]
  4. PULMICORT [Concomitant]
  5. CAPTOPRIL [Concomitant]
  6. CARVEDILOL [Concomitant]
  7. DIGOXIN [Concomitant]
  8. LASIX [Concomitant]

REACTIONS (8)
  - CARDIAC FAILURE [None]
  - DRUG INEFFECTIVE [None]
  - INTERNATIONAL NORMALISED RATIO INCREASED [None]
  - PROTHROMBIN TIME PROLONGED [None]
  - RESPIRATORY DISTRESS [None]
  - SHOCK [None]
  - URINE OUTPUT DECREASED [None]
  - URTICARIA [None]
